FAERS Safety Report 9739157 (Version 1)
Quarter: 2013Q4

REPORT INFORMATION
  Report Type: Spontaneous
  Country: JP (occurrence: JP)
  Receive Date: 20131209
  Receipt Date: 20131209
  Transmission Date: 20140711
  Serious: Yes (Death)
  Sender: FDA-Public Use
  Company Number: JP-ASTELLAS-2013JP013482

PATIENT
  Age: 73 Year
  Sex: Male
  Weight: 56.5 kg

DRUGS (6)
  1. PROGRAF [Suspect]
     Indication: RHEUMATOID ARTHRITIS
     Dosage: 2 MG, UID/QD
     Route: 048
     Dates: start: 20131113, end: 20131125
  2. PREDONINE                          /00016201/ [Concomitant]
     Indication: RHEUMATOID ARTHRITIS
     Dosage: 17.5 MG, UID/QD
     Route: 048
     Dates: start: 20130327, end: 2013
  3. PREDONINE                          /00016201/ [Concomitant]
     Indication: INTERSTITIAL LUNG DISEASE
     Dosage: UNK
     Route: 048
     Dates: start: 2013, end: 20131125
  4. BAKTAR [Concomitant]
     Indication: INFECTION PROPHYLAXIS
     Dosage: UNK
     Route: 048
     Dates: start: 20130508, end: 20131130
  5. BONALON [Concomitant]
     Indication: OSTEOPOROSIS PROPHYLAXIS
     Dosage: 35 MG, WEEKLY
     Route: 048
     Dates: start: 20130508, end: 20131130
  6. HUMALOG MIX [Concomitant]
     Indication: DIABETES MELLITUS
     Dosage: 13 IU, TID
     Route: 058
     Dates: start: 20130327, end: 20131201

REACTIONS (1)
  - Interstitial lung disease [Fatal]
